FAERS Safety Report 4692203-6 (Version None)
Quarter: 2005Q2

REPORT INFORMATION
  Report Type: 
  Country: None (occurrence: None)
  Receive Date: 20050614
  Receipt Date: 20050606
  Transmission Date: 20051028
  Serious: Yes (Other)
  Sender: FDA-Public Use
  Company Number: 2005085571

PATIENT
  Sex: Female

DRUGS (5)
  1. XALATAN [Suspect]
     Indication: GLAUCOMA
     Dosage: 1 IN 1 D
     Dates: start: 20010924
  2. LIPITOR [Concomitant]
  3. LEVOTHYROXINE SODIUM [Concomitant]
  4. VASOPRIL /BRA/ (ENALAPRIL MALEATE) [Concomitant]
  5. CLORANA (HYDROCHLOROTHIAZIDE) [Concomitant]

REACTIONS (3)
  - EYE DISORDER [None]
  - INTRAOCULAR PRESSURE TEST [None]
  - OPTIC NERVE DISORDER [None]
